FAERS Safety Report 9814760 (Version 1)
Quarter: 2014Q1

REPORT INFORMATION
  Report Type: Spontaneous
  Country: US (occurrence: US)
  Receive Date: 20140113
  Receipt Date: 20140113
  Transmission Date: 20141002
  Serious: Yes (Other)
  Sender: FDA-Public Use
  Company Number: US-SANOFI-AVENTIS-2013SA080073

PATIENT
  Age: 62 Year
  Sex: Male

DRUGS (1)
  1. TAXOTERE [Suspect]
     Indication: PROSTATE CANCER METASTATIC
     Route: 065
     Dates: start: 20120807, end: 20120807

REACTIONS (4)
  - Infection [Recovered/Resolved]
  - Hypersensitivity [Recovered/Resolved]
  - Skin lesion [Recovered/Resolved]
  - Weight decreased [Unknown]
